FAERS Safety Report 9056658 (Version 1)
Quarter: 2013Q1

REPORT INFORMATION
  Report Type: Spontaneous
  Country: GB (occurrence: GB)
  Receive Date: 20130204
  Receipt Date: 20130204
  Transmission Date: 20140127
  Serious: Yes (Hospitalization)
  Sender: FDA-Public Use
  Company Number: PHHY2013GB006231

PATIENT
  Age: 65 Year
  Sex: Female
  Weight: 66 kg

DRUGS (12)
  1. VINCRISTINE SULFATE [Suspect]
     Indication: B-CELL LYMPHOMA
     Route: 065
  2. DOXORUBICIN HYDROCHLORIDE [Suspect]
     Indication: B-CELL LYMPHOMA
     Route: 065
  3. PREDNISONE [Suspect]
     Indication: B-CELL LYMPHOMA
     Route: 065
  4. RITUXIMAB [Suspect]
     Indication: B-CELL LYMPHOMA
     Route: 041
     Dates: start: 20121017
  5. CYCLOPHOSPHAMIDE [Suspect]
     Indication: B-CELL LYMPHOMA
  6. DOSULEPIN [Concomitant]
     Indication: DEPRESSION
  7. ZOPICLONE [Concomitant]
     Indication: PROPHYLAXIS
  8. PHENOXYMETHYLPENICILLIN [Concomitant]
     Indication: SPLENECTOMY
     Dates: start: 20120323
  9. FYBOGEL [Concomitant]
     Indication: CONSTIPATION
  10. SENNA [Concomitant]
     Indication: CONSTIPATION
  11. LAXIDO [Concomitant]
     Indication: CONSTIPATION
     Dates: start: 20121026
  12. RANITIDINE [Concomitant]
     Indication: DYSPEPSIA
     Dates: start: 20121026

REACTIONS (1)
  - Neutropenic sepsis [Not Recovered/Not Resolved]
